FAERS Safety Report 15965357 (Version 1)
Quarter: 2019Q1

REPORT INFORMATION
  Report Type: Spontaneous
  Country: US (occurrence: US)
  Receive Date: 20190215
  Receipt Date: 20190215
  Transmission Date: 20190418
  Serious: Yes (Hospitalization, Other)
  Sender: FDA-Public Use
  Company Number: US-REGENERON PHARMACEUTICALS, INC.-2019-17239

PATIENT

DRUGS (1)
  1. EYLEA [Suspect]
     Active Substance: AFLIBERCEPT
     Indication: CONJUNCTIVAL HAEMORRHAGE
     Dosage: UNK UNK, MONTHLY
     Route: 031
     Dates: start: 2017, end: 201712

REACTIONS (4)
  - Ill-defined disorder [Unknown]
  - Refusal of treatment by patient [Unknown]
  - Off label use [Unknown]
  - Cataract [Unknown]

NARRATIVE: CASE EVENT DATE: 2017
